FAERS Safety Report 8809663 (Version 2)
Quarter: 2015Q2

REPORT INFORMATION
  Report Type: Report from Study
  Country: US (occurrence: US)
  Receive Date: 20120926
  Receipt Date: 20150618
  Transmission Date: 20150821
  Serious: Yes (Other)
  Sender: FDA-Public Use
  Company Number: US-ROCHE-1125797

PATIENT
  Sex: Female

DRUGS (11)
  1. OXYCONTIN [Concomitant]
     Active Substance: OXYCODONE HYDROCHLORIDE
     Route: 065
  2. TAXOL [Concomitant]
     Active Substance: PACLITAXEL
  3. XELODA [Suspect]
     Active Substance: CAPECITABINE
     Indication: BREAST CANCER FEMALE
     Route: 065
  4. SYNTHROID [Concomitant]
     Active Substance: LEVOTHYROXINE SODIUM
  5. KYTRIL [Concomitant]
     Active Substance: GRANISETRON HYDROCHLORIDE
     Route: 042
  6. XELODA [Suspect]
     Active Substance: CAPECITABINE
     Indication: METASTASES TO BONE MARROW
  7. CARBOPLATIN. [Concomitant]
     Active Substance: CARBOPLATIN
  8. FASLODEX [Concomitant]
     Active Substance: FULVESTRANT
  9. PROCRIT [Concomitant]
     Active Substance: ERYTHROPOIETIN
     Dosage: 60000
     Route: 058
  10. ARIMIDEX [Concomitant]
     Active Substance: ANASTROZOLE
  11. NAVELBINE [Concomitant]
     Active Substance: VINORELBINE TARTRATE
     Route: 042

REACTIONS (6)
  - Disease progression [Unknown]
  - Constipation [Unknown]
  - Bone pain [Not Recovered/Not Resolved]
  - Hypoaesthesia [Unknown]
  - Neuropathy peripheral [Unknown]
  - Weight decreased [Unknown]
